FAERS Safety Report 5091329-5 (Version None)
Quarter: 2006Q3

REPORT INFORMATION
  Report Type: 
  Country: None (occurrence: None)
  Receive Date: 20060829
  Receipt Date: 20051122
  Transmission Date: 20061208
  Serious: No
  Sender: FDA-Public Use
  Company Number: US-GLAXOSMITHKLINE-A0583456A

PATIENT
  Sex: Female

DRUGS (8)
  1. BECONASE [Suspect]
     Dosage: 1SPR PER DAY
     Route: 045
     Dates: start: 20051007
  2. ADVAIR DISKUS 100/50 [Concomitant]
  3. COMBIVENT [Concomitant]
  4. BENICAR [Concomitant]
  5. PIROXICAM [Concomitant]
  6. ACETAMINOPHEN [Concomitant]
  7. DIPHENHYDRAMINE [Concomitant]
  8. SINGULAIR [Concomitant]

REACTIONS (1)
  - ECZEMA [None]
